FAERS Safety Report 14306752 (Version 1)
Quarter: 2017Q4

REPORT INFORMATION
  Report Type: Spontaneous
  Country: AU (occurrence: AU)
  Receive Date: 20171220
  Receipt Date: 20171220
  Transmission Date: 20180321
  Serious: Yes (Hospitalization)
  Sender: FDA-Public Use
  Company Number: AU-ROCHE-2043043

PATIENT
  Sex: Female

DRUGS (1)
  1. XOLAIR [Suspect]
     Active Substance: OMALIZUMAB
     Indication: PRODUCT USED FOR UNKNOWN INDICATION
     Route: 065

REACTIONS (8)
  - Dyspnoea [Unknown]
  - Secretion discharge [Unknown]
  - Respiratory tract oedema [Unknown]
  - Urticaria [Unknown]
  - Asthma [Unknown]
  - Rash [Unknown]
  - Wheezing [Unknown]
  - Cough [Unknown]
